FAERS Safety Report 17802127 (Version 2)
Quarter: 2020Q2

REPORT INFORMATION
  Report Type: Spontaneous
  Country: US (occurrence: US)
  Receive Date: 20200519
  Receipt Date: 20200522
  Transmission Date: 20200714
  Serious: No
  Sender: FDA-Public Use
  Company Number: US-PFIZER INC-2020197907

PATIENT
  Age: 41 Year
  Sex: Male

DRUGS (1)
  1. NICOTROL [Suspect]
     Active Substance: NICOTINE
     Indication: SMOKING CESSATION THERAPY
     Dosage: 1 PUFF, EVERY TWO HOURS, AS DIRECTED PER PACKAGE LABELING
     Route: 048

REACTIONS (2)
  - Drug delivery system issue [Unknown]
  - Poor quality product administered [Unknown]
